FAERS Safety Report 16171105 (Version 2)
Quarter: 2019Q2

REPORT INFORMATION
  Report Type: Spontaneous
  Country: US (occurrence: US)
  Receive Date: 20190408
  Receipt Date: 20190503
  Transmission Date: 20190711
  Serious: Yes (Hospitalization)
  Sender: FDA-Public Use
  Company Number: US-MTPC-MTDA2019-0043503

PATIENT

DRUGS (2)
  1. RADICAVA [Suspect]
     Active Substance: EDARAVONE
     Dosage: 60 MG OVER 60 MIN PERIOD, DAILY FOR 10 DAYS OUT OF 14 DAYS FOLLOWED BY A 14 DAY DRUG FREE PERIOD
     Route: 042
  2. RADICAVA [Suspect]
     Active Substance: EDARAVONE
     Indication: AMYOTROPHIC LATERAL SCLEROSIS
     Dosage: 60 MG OVER 60 MIN PERIOD, DAILY FOR 14 DAYS FOLLOWED BY A 14 DAY DRUG FREE PERIOD
     Route: 042
     Dates: start: 20181106

REACTIONS (3)
  - Therapeutic response unexpected [Not Recovered/Not Resolved]
  - Fall [Unknown]
  - Energy increased [Not Recovered/Not Resolved]
